FAERS Safety Report 5181147-1 (Version None)
Quarter: 2006Q4

REPORT INFORMATION
  Report Type: 
  Country: None (occurrence: None)
  Receive Date: 20061220
  Receipt Date: 20061214
  Transmission Date: 20070319
  Serious: Yes (Other)
  Sender: FDA-Public Use
  Company Number: US-JNJFOC-20061204597

PATIENT
  Sex: Male

DRUGS (11)
  1. EXTRA STRENGTH TYLENOL [Suspect]
  2. EXTRA STRENGTH TYLENOL [Suspect]
     Indication: BONE PAIN
  3. ASPIRIN [Concomitant]
  4. VITAMIN E [Concomitant]
  5. FLOMAX [Concomitant]
     Dosage: EVERY DAY
  6. BENICAR [Concomitant]
     Indication: BLOOD PRESSURE
  7. LAMISIL [Concomitant]
     Indication: ONYCHOMYCOSIS
  8. PROTONIX [Concomitant]
     Indication: GASTRIC DISORDER
  9. ADVAIR DISKUS 100/50 [Concomitant]
     Dosage: 2 PUFFS DAILY
  10. SPIRIVA [Concomitant]
     Dosage: EVERY DAY
  11. NORVASC [Concomitant]

REACTIONS (3)
  - EXPIRED DRUG ADMINISTERED [None]
  - HAEMOPTYSIS [None]
  - RECTAL HAEMORRHAGE [None]
